FAERS Safety Report 18519753 (Version 1)
Quarter: 2020Q4

REPORT INFORMATION
  Report Type: Spontaneous
  Country: US (occurrence: US)
  Receive Date: 20201118
  Receipt Date: 20201118
  Transmission Date: 20210114
  Serious: No
  Sender: FDA-Public Use
  Company Number: US-BIOMARINAP-US-2020-132904

PATIENT
  Age: 39 Year
  Sex: Female

DRUGS (1)
  1. PALYNZIQ [Suspect]
     Active Substance: PEGVALIASE-PQPZ
     Indication: PHENYLKETONURIA
     Dosage: 2.5 MILLIGRAM
     Route: 058
     Dates: start: 20200925

REACTIONS (5)
  - Injection site warmth [Unknown]
  - Injection site pain [Unknown]
  - Injection site bruising [Unknown]
  - Skin reaction [Unknown]
  - Injection site reaction [Unknown]

NARRATIVE: CASE EVENT DATE: 20201009
